FAERS Safety Report 7178332-6 (Version None)
Quarter: 2010Q4

REPORT INFORMATION
  Report Type: 
  Country: None (occurrence: None)
  Receive Date: 20101220
  Receipt Date: 20101207
  Transmission Date: 20110411
  Serious: Yes (Other)
  Sender: FDA-Public Use
  Company Number: DE-WATSON-2010-15941

PATIENT
  Age: 62 Year
  Sex: Female

DRUGS (2)
  1. PRIMIDONE [Suspect]
     Indication: EPILEPSY
     Dosage: 600 MG, DAILY
  2. PHENYTOIN [Suspect]
     Indication: EPILEPSY
     Dosage: 250 MG, DAILY

REACTIONS (5)
  - ASTERIXIS [None]
  - DYSARTHRIA [None]
  - HYPERAMMONAEMIA [None]
  - NYSTAGMUS [None]
  - SOMNOLENCE [None]
